FAERS Safety Report 16838830 (Version 4)
Quarter: 2020Q1

REPORT INFORMATION
  Report Type: Report from Study
  Country: JP (occurrence: JP)
  Receive Date: 20190923
  Receipt Date: 20200302
  Transmission Date: 20200409
  Serious: Yes (Death, Life-Threatening, Hospitalization, Disabling, Other)
  Sender: FDA-Public Use
  Company Number: PHJP2019JP012425

PATIENT
  Age: 87 Year
  Sex: Male

DRUGS (15)
  1. CONCENTRATED RED CELLS [Concomitant]
     Active Substance: HUMAN RED BLOOD CELL
     Indication: APLASTIC ANAEMIA
     Dosage: UNK, 4 TIMES/MONTH
     Route: 065
     Dates: start: 20190517, end: 20190613
  2. CONCENTRATED RED CELLS [Concomitant]
     Active Substance: HUMAN RED BLOOD CELL
     Dosage: UNK, 5 TIMES/MONTH
     Route: 065
     Dates: start: 20190809, end: 20190905
  3. CONCENTRATED RED CELLS [Concomitant]
     Active Substance: HUMAN RED BLOOD CELL
     Dosage: UNK, 4 TIMES/MONTH
     Route: 065
     Dates: start: 20190712, end: 20190808
  4. CONCENTRATED RED CELLS [Concomitant]
     Active Substance: HUMAN RED BLOOD CELL
     Dosage: UNK, 5 TIMES/MONTH
     Route: 065
     Dates: start: 20190906, end: 20191003
  5. REVOLADE TAB [Suspect]
     Active Substance: ELTROMBOPAG
     Dosage: 37.5 MG
     Route: 048
     Dates: start: 20190626, end: 20190917
  6. REVOLADE TAB [Suspect]
     Active Substance: ELTROMBOPAG
     Indication: APLASTIC ANAEMIA
     Dosage: 25 MG, UNK
     Route: 048
     Dates: start: 20190517, end: 20190625
  7. CYCLOSPORINE. [Suspect]
     Active Substance: CYCLOSPORINE
     Indication: APLASTIC ANAEMIA
     Dosage: 60 MG, UNK
     Route: 048
     Dates: start: 20120508, end: 20190516
  8. CYCLOSPORINE. [Suspect]
     Active Substance: CYCLOSPORINE
     Dosage: 30 MG, UNK
     Route: 048
     Dates: start: 20190517, end: 20190606
  9. PLATELETS [Concomitant]
     Active Substance: HUMAN PLATELET, ALLOGENIC
     Indication: APLASTIC ANAEMIA
     Dosage: UNK, QMO
     Route: 065
     Dates: start: 20190517, end: 20190613
  10. PLATELETS [Concomitant]
     Active Substance: HUMAN PLATELET, ALLOGENIC
     Dosage: UNK, QMO
     Route: 065
     Dates: start: 20190906, end: 20191003
  11. PRIMOBOLAN [Concomitant]
     Active Substance: METHENOLONE
     Indication: APLASTIC ANAEMIA
     Dosage: 15 MG, UNK
     Route: 048
     Dates: start: 20190517, end: 20190917
  12. PLATELETS [Concomitant]
     Active Substance: HUMAN PLATELET, ALLOGENIC
     Dosage: UNK, QMO
     Route: 065
     Dates: start: 20190614, end: 20190711
  13. PLATELETS [Concomitant]
     Active Substance: HUMAN PLATELET, ALLOGENIC
     Dosage: UNK, TWICE/MONTH
     Route: 065
     Dates: start: 20190712, end: 20190808
  14. CYCLOSPORINE. [Suspect]
     Active Substance: CYCLOSPORINE
     Dosage: 20 MG
     Route: 048
     Dates: start: 20190607, end: 20190616
  15. CONCENTRATED RED CELLS [Concomitant]
     Active Substance: HUMAN RED BLOOD CELL
     Dosage: UNK, 5 TIMES/MONTH
     Route: 065
     Dates: start: 20190614, end: 20190711

REACTIONS (4)
  - Renal disorder [Fatal]
  - Pneumonia [Fatal]
  - Cardiac failure [Fatal]
  - Condition aggravated [Unknown]

NARRATIVE: CASE EVENT DATE: 20190916
